FAERS Safety Report 6448681-5 (Version None)
Quarter: 2009Q4

REPORT INFORMATION
  Report Type: 
  Country: None (occurrence: None)
  Receive Date: 20091120
  Receipt Date: 20090805
  Transmission Date: 20100525
  Serious: No
  Sender: FDA-Public Use
  Company Number: US-KINGPHARMUSA00001-K200900875

PATIENT
  Age: 86 Year
  Sex: Male
  Weight: 79.819 kg

DRUGS (1)
  1. FLECTOR [Suspect]
     Indication: MUSCULOSKELETAL PAIN
     Dosage: 1 PATCH, UNK
     Route: 061
     Dates: start: 20090501, end: 20090501

REACTIONS (2)
  - FEELING ABNORMAL [None]
  - SLEEP APNOEA SYNDROME [None]
